FAERS Safety Report 19814039 (Version 2)
Quarter: 2021Q3

REPORT INFORMATION
  Report Type: Spontaneous
  Country: ES (occurrence: ES)
  Receive Date: 20210910
  Receipt Date: 20210915
  Transmission Date: 20211014
  Serious: Yes (Death, Other)
  Sender: FDA-Public Use
  Company Number: ES-MYLANLABS-2021M1059128

PATIENT
  Age: 49 Year
  Sex: Male

DRUGS (20)
  1. ADRIAMYCIN [Suspect]
     Active Substance: DOXORUBICIN HYDROCHLORIDE
     Indication: SMALL CELL LUNG CANCER
     Dosage: 40 MILLIGRAM/SQ. METER, CYCLE, DAY 1; 1ST CYCLE
     Route: 065
  2. ADRIAMYCIN [Suspect]
     Active Substance: DOXORUBICIN HYDROCHLORIDE
     Dosage: 40 MILLIGRAM/SQ. METER, CYCLE, DAY 1;3RD CYCLE
     Route: 065
  3. GENOXAL [Suspect]
     Active Substance: CYCLOPHOSPHAMIDE
     Indication: SMALL CELL LUNG CANCER
     Dosage: 400 MILLIGRAM/SQ. METER, CYCLE, DAYS 1?3 FOR 1ST CYCLE
     Route: 065
  4. CISPLATIN. [Suspect]
     Active Substance: CISPLATIN
     Indication: SMALL CELL LUNG CANCER EXTENSIVE STAGE
     Dosage: UNK, CYCLE, 20% DOSE REDUCTION IN 2ND CYCLE
     Route: 065
  5. VINCRISTINE [Suspect]
     Active Substance: VINCRISTINE
     Indication: SMALL CELL LUNG CANCER
     Dosage: 2 MILLIGRAM, CYCLE, DAY 3 FOR 1ST CYCLE
     Route: 065
  6. VINCRISTINE [Suspect]
     Active Substance: VINCRISTINE
     Indication: SMALL CELL LUNG CANCER EXTENSIVE STAGE
     Dosage: UNK UNK, CYCLE, 20% OF DOSE REDUCTION FOR 2ND CYCLE
     Route: 065
  7. ETOPOSIDE. [Suspect]
     Active Substance: ETOPOSIDE
     Dosage: 4RD CYCLE
     Route: 065
  8. PEGFILGRASTIM [Concomitant]
     Active Substance: PEGFILGRASTIM
     Indication: PROPHYLAXIS
     Dosage: UNK
     Route: 065
  9. CISPLATIN. [Suspect]
     Active Substance: CISPLATIN
     Indication: SMALL CELL LUNG CANCER
     Dosage: 100 MILLIGRAM/SQ. METER, CYCLE, DAY 2 FOR 1ST CYCLE
     Route: 065
  10. GENOXAL [Suspect]
     Active Substance: CYCLOPHOSPHAMIDE
     Dosage: 400 MILLIGRAM/SQ. METER, CYCLE, DAYS 1?3; 3RD CYCLE
     Route: 065
  11. CISPLATIN. [Suspect]
     Active Substance: CISPLATIN
     Dosage: 100 MILLIGRAM/SQ. METER, CYCLE, DAY 2; 3RD CYCLE
     Route: 065
  12. CISPLATIN. [Suspect]
     Active Substance: CISPLATIN
     Dosage: 4RD CYCLE
     Route: 065
  13. ADRIAMYCIN [Suspect]
     Active Substance: DOXORUBICIN HYDROCHLORIDE
     Indication: SMALL CELL LUNG CANCER EXTENSIVE STAGE
     Dosage: UNK UNK, CYCLE 20% DOSE REDUCED FOR 2ND CYCLE
     Route: 065
  14. ADRIAMYCIN [Suspect]
     Active Substance: DOXORUBICIN HYDROCHLORIDE
     Dosage: 4RD CYCLE
     Route: 065
  15. GENOXAL [Suspect]
     Active Substance: CYCLOPHOSPHAMIDE
     Indication: SMALL CELL LUNG CANCER EXTENSIVE STAGE
     Dosage: UNK UNK, CYCLE, 20% OF DOSE REDUCTION FOR 2ND CYCLE
     Route: 065
  16. VINCRISTINE [Suspect]
     Active Substance: VINCRISTINE
     Dosage: 4RD CYCLE
     Route: 065
  17. ETOPOSIDE. [Suspect]
     Active Substance: ETOPOSIDE
     Indication: SMALL CELL LUNG CANCER EXTENSIVE STAGE
     Dosage: UNK UNK, CYCLE, 20% DOSE REDUCTION FOR 2ND CYCLE
     Route: 065
  18. VINCRISTINE [Suspect]
     Active Substance: VINCRISTINE
     Dosage: 2 MILLIGRAM, CYCLE, DAY 3; 3RD CYCLE
     Route: 065
  19. ETOPOSIDE. [Suspect]
     Active Substance: ETOPOSIDE
     Indication: SMALL CELL LUNG CANCER
     Dosage: 100 MILLIGRAM/SQ. METER, CYCLE, DAYS 1?3 FOR 1ST CYCLE
     Route: 065
  20. ETOPOSIDE. [Suspect]
     Active Substance: ETOPOSIDE
     Dosage: 100 MILLIGRAM/SQ. METER, CYCLE, DAYS 1?3; 3RD CYCLE
     Route: 065

REACTIONS (7)
  - Hepatitis B reactivation [Unknown]
  - Neutropenia [Unknown]
  - Hepatitis cholestatic [Fatal]
  - Febrile neutropenia [Unknown]
  - Thrombocytopenia [Unknown]
  - Acute hepatic failure [Fatal]
  - Hepatic enzyme increased [Unknown]
